FAERS Safety Report 17797504 (Version 1)
Quarter: 2020Q2

REPORT INFORMATION
  Report Type: Spontaneous
  Country: US (occurrence: US)
  Receive Date: 20200518
  Receipt Date: 20200518
  Transmission Date: 20200714
  Serious: No
  Sender: FDA-Public Use
  Company Number: US-SA-2018SA273779

PATIENT
  Age: 51 Year
  Sex: Female

DRUGS (4)
  1. HYDROXYZINE HCL [Concomitant]
     Active Substance: HYDROXYZINE HYDROCHLORIDE
  2. HYDROCORTISONE. [Concomitant]
     Active Substance: HYDROCORTISONE
  3. FLUOCINONIDE. [Concomitant]
     Active Substance: FLUOCINONIDE
  4. DUPIXENT [Suspect]
     Active Substance: DUPILUMAB
     Indication: DERMATITIS ATOPIC
     Dosage: 300 MG, QOW
     Route: 058
     Dates: start: 201709

REACTIONS (1)
  - Weight increased [Unknown]
